FAERS Safety Report 11741608 (Version 1)
Quarter: 2015Q4

REPORT INFORMATION
  Report Type: Spontaneous
  Country: US (occurrence: US)
  Receive Date: 20151116
  Receipt Date: 20151116
  Transmission Date: 20160304
  Serious: No
  Sender: FDA-Public Use
  Company Number: US-ASTRAZENECA-2015SF07445

PATIENT
  Age: 56 Year
  Sex: Female

DRUGS (3)
  1. XIGDUO XR [Suspect]
     Active Substance: DAPAGLIFLOZIN PROPANEDIOL\METFORMIN HYDROCHLORIDE
     Indication: TYPE 2 DIABETES MELLITUS
     Dosage: 10/1000MG
     Route: 048
     Dates: start: 201503
  2. BENICAR [Concomitant]
     Active Substance: OLMESARTAN MEDOXOMIL
  3. DEXILANT [Concomitant]
     Active Substance: DEXLANSOPRAZOLE

REACTIONS (2)
  - Alopecia [Unknown]
  - Hair disorder [Unknown]
